FAERS Safety Report 16346192 (Version 1)
Quarter: 2019Q2

REPORT INFORMATION
  Report Type: Spontaneous
  Country: IT (occurrence: IT)
  Receive Date: 20190523
  Receipt Date: 20190523
  Transmission Date: 20190711
  Serious: Yes (Other)
  Sender: FDA-Public Use
  Company Number: IT-AUROBINDO-AUR-APL-2019-026877

PATIENT

DRUGS (3)
  1. MEMANTINE HYDROCHLORIDE. [Concomitant]
     Active Substance: MEMANTINE HYDROCHLORIDE
     Indication: PRODUCT USED FOR UNKNOWN INDICATION
     Dosage: UNK
     Route: 065
  2. DONEPEZIL. [Suspect]
     Active Substance: DONEPEZIL
     Indication: PRODUCT USED FOR UNKNOWN INDICATION
     Dosage: UNK
     Route: 048
  3. COTAREG [Suspect]
     Active Substance: HYDROCHLOROTHIAZIDE\VALSARTAN
     Indication: PRODUCT USED FOR UNKNOWN INDICATION
     Dosage: UNK
     Route: 048

REACTIONS (3)
  - Syncope [Not Recovered/Not Resolved]
  - Speech disorder [Not Recovered/Not Resolved]
  - Asthenia [Not Recovered/Not Resolved]

NARRATIVE: CASE EVENT DATE: 20180320
